FAERS Safety Report 18626503 (Version 1)
Quarter: 2020Q4

REPORT INFORMATION
  Report Type: Report from Study
  Country: CA (occurrence: CA)
  Receive Date: 20201217
  Receipt Date: 20201217
  Transmission Date: 20210114
  Serious: Yes (Other)
  Sender: FDA-Public Use
  Company Number: CA-JNJFOC-20201216657

PATIENT
  Age: 10 Year
  Sex: Male
  Weight: 39.5 kg

DRUGS (1)
  1. STELARA [Suspect]
     Active Substance: USTEKINUMAB
     Indication: PSORIASIS
     Dosage: 29 MG (0.75 MG/KG) 0, 4, 16 AND THEN EVERY 12 WEEKS
     Route: 058

REACTIONS (3)
  - Soft tissue infection [Not Recovered/Not Resolved]
  - Product use issue [Unknown]
  - Off label use [Unknown]

NARRATIVE: CASE EVENT DATE: 20201121
